FAERS Safety Report 17667221 (Version 2)
Quarter: 2020Q2

REPORT INFORMATION
  Report Type: Spontaneous
  Country: US (occurrence: US)
  Receive Date: 20200414
  Receipt Date: 20200522
  Transmission Date: 20200713
  Serious: No
  Sender: FDA-Public Use
  Company Number: US-ASTRAZENECA-2020SE44106

PATIENT
  Sex: Female
  Weight: 90.7 kg

DRUGS (1)
  1. SYMBICORT [Suspect]
     Active Substance: BUDESONIDE\FORMOTEROL FUMARATE DIHYDRATE
     Indication: CHRONIC OBSTRUCTIVE PULMONARY DISEASE
     Dosage: 160/4.5 MCG, 2 PUFFS
     Route: 055

REACTIONS (4)
  - Product taste abnormal [Unknown]
  - Drug delivery system issue [Unknown]
  - Dyspnoea [Unknown]
  - Product use issue [Unknown]
